FAERS Safety Report 17854578 (Version 1)
Quarter: 2020Q2

REPORT INFORMATION
  Report Type: Spontaneous
  Country: US (occurrence: US)
  Receive Date: 20200602
  Receipt Date: 20200602
  Transmission Date: 20200714
  Serious: Yes (Death)
  Sender: FDA-Public Use
  Company Number: None

PATIENT
  Age: 51 Year
  Sex: Female
  Weight: 91 kg

DRUGS (19)
  1. REMDESIVIR. [Suspect]
     Active Substance: REMDESIVIR
     Indication: COVID-19
     Route: 042
     Dates: start: 20200520, end: 20200528
  2. VANCOMCYIN [Concomitant]
     Active Substance: VANCOMYCIN
     Dates: start: 20200517, end: 20200528
  3. HUMALOG [Concomitant]
     Active Substance: INSULIN LISPRO
     Dates: start: 20200509, end: 20200528
  4. ASCORBIC ACID. [Concomitant]
     Active Substance: ASCORBIC ACID
     Dates: start: 20200509, end: 20200528
  5. ESOMEPRAZOLE. [Concomitant]
     Active Substance: ESOMEPRAZOLE MAGNESIUM
     Dates: start: 20200510, end: 20200528
  6. MORPHINE DRIP [Concomitant]
     Dates: start: 20200520, end: 20200528
  7. NOREPINEPINE DRIP [Concomitant]
     Dates: start: 20200509, end: 20200528
  8. VERSED DRIP [Concomitant]
     Dates: start: 20200516, end: 20200528
  9. CHOLECALCIFEROL [Concomitant]
     Active Substance: CHOLECALCIFEROL
     Dates: start: 20200509, end: 20200528
  10. SELENIUM [Concomitant]
     Active Substance: SELENIUM
     Dates: start: 20200509, end: 20200528
  11. ZINC SULFATE. [Concomitant]
     Active Substance: ZINC SULFATE
     Dates: start: 20200509, end: 20200528
  12. VASOPRESSIN DRIP [Concomitant]
     Dates: start: 20200516, end: 20200527
  13. PHENYLEHPRINE DRIP [Concomitant]
     Dates: start: 20200528, end: 20200528
  14. FOLIC ACID. [Concomitant]
     Active Substance: FOLIC ACID
     Dates: start: 20200509, end: 20200528
  15. ROCURONIUM DRIP [Concomitant]
     Dates: start: 20200509, end: 20200528
  16. HEPARIN FOR CRRT [Concomitant]
     Dates: start: 20200519, end: 20200528
  17. VITAMIN E [Concomitant]
     Active Substance: .ALPHA.-TOCOPHEROL
     Dates: start: 20200509, end: 20200528
  18. TPN [Concomitant]
     Active Substance: AMINO ACIDS\DEXTROSE\ELECTROLYTES NOS\SOYBEAN OIL
     Dates: start: 20200523, end: 20200528
  19. MEROPENEM. [Concomitant]
     Active Substance: MEROPENEM
     Dates: start: 20200514, end: 20200528

REACTIONS (1)
  - Death [None]

NARRATIVE: CASE EVENT DATE: 20200528
